FAERS Safety Report 18440601 (Version 1)
Quarter: 2020Q4

REPORT INFORMATION
  Report Type: Report from Study
  Country: IT (occurrence: IT)
  Receive Date: 20201029
  Receipt Date: 20201029
  Transmission Date: 20210114
  Serious: Yes (Other)
  Sender: FDA-Public Use
  Company Number: IT-PFIZER INC-2020418062

PATIENT
  Age: 44 Year
  Sex: Female

DRUGS (4)
  1. ALMARYTM [Concomitant]
     Active Substance: FLECAINIDE ACETATE
  2. MEDROL [Suspect]
     Active Substance: METHYLPREDNISOLONE
     Indication: SCIATICA
     Dosage: 32 MG, 1X/DAY
     Route: 048
     Dates: start: 20200919, end: 20200920
  3. METFORMIN [Concomitant]
     Active Substance: METFORMIN HYDROCHLORIDE
  4. REVINTY ELLIPTA [Concomitant]
     Active Substance: FLUTICASONE FUROATE\VILANTEROL TRIFENATATE

REACTIONS (1)
  - Diabetic metabolic decompensation [Recovering/Resolving]

NARRATIVE: CASE EVENT DATE: 20200920
